FAERS Safety Report 9925087 (Version 1)
Quarter: 2014Q1

REPORT INFORMATION
  Report Type: Spontaneous
  Country: US (occurrence: None)
  Receive Date: 20140225
  Receipt Date: 20140225
  Transmission Date: 20141002
  Serious: Yes (Other)
  Sender: FDA-Public Use
  Company Number: None

PATIENT
  Age: 77 Year
  Sex: Male
  Weight: 99.79 kg

DRUGS (1)
  1. ACYCLOVIR [Suspect]
     Indication: HERPES ZOSTER
     Dosage: 100 PILLS/400 MG 800 MG/FIVE DAILY  TAKEN BY MOUTH
     Route: 048
     Dates: start: 20140220, end: 20140220

REACTIONS (5)
  - Dizziness [None]
  - Malaise [None]
  - Oral herpes [None]
  - Product quality issue [None]
  - Product contamination [None]
